FAERS Safety Report 8341762-0 (Version None)
Quarter: 2012Q2

REPORT INFORMATION
  Report Type: 
  Country: None (occurrence: None)
  Receive Date: 20120507
  Receipt Date: 20120430
  Transmission Date: 20120825
  Serious: Yes (Other)
  Sender: FDA-Public Use
  Company Number: US-BAYER-2012-038490

PATIENT
  Age: 31 Year
  Sex: Male
  Weight: 88.163 kg

DRUGS (6)
  1. OXYCODONE HCL [Concomitant]
     Indication: ABDOMINAL PAIN
     Dosage: 5 MG EVERY 6 HRS
     Route: 048
     Dates: start: 20111208
  2. SORAFENIB (RAF KINASE INHIBITOR) [Suspect]
     Dosage: 400 MG, QOD
     Route: 048
     Dates: start: 20120222, end: 20120410
  3. SORAFENIB (RAF KINASE INHIBITOR) [Suspect]
     Indication: HEPATIC NEOPLASM MALIGNANT
     Dosage: 400 MG, QOD
     Route: 048
     Dates: start: 20111104, end: 20120221
  4. BARACLUDE [Concomitant]
     Indication: HEPATITIS
     Dosage: 0.5 MG, QD
     Route: 048
     Dates: start: 20111208
  5. CALCITRIOL [Concomitant]
     Indication: VITAMIN D DEFICIENCY
     Dosage: 0.5 ?G, QD
     Route: 048
     Dates: start: 20111222
  6. NEUTRA-PHOS [Concomitant]
     Indication: HYPOPHOSPHATAEMIA
     Dosage: 750 MG, BID (THREE 250 MG TABLETS, BID)

REACTIONS (2)
  - DUODENITIS [None]
  - DUODENAL ULCER [None]
